FAERS Safety Report 10336923 (Version 5)
Quarter: 2014Q3

REPORT INFORMATION
  Report Type: Report from Study
  Country: US (occurrence: US)
  Receive Date: 20140723
  Receipt Date: 20140917
  Transmission Date: 20150326
  Serious: Yes (Hospitalization)
  Sender: FDA-Public Use
  Company Number: US-MERCK-1403USA002712

PATIENT
  Age: 70 Year
  Sex: Male
  Weight: 87.3 kg

DRUGS (22)
  1. PEMBROLIZUMAB. [Suspect]
     Active Substance: PEMBROLIZUMAB
     Indication: NON-SMALL CELL LUNG CANCER
     Dosage: 2 MG/KG, Q3W, DOSE REPORTED: 100 (UNIT NOT PROVIDED)
     Route: 042
     Dates: start: 20140221, end: 20140221
  2. AMARYL [Concomitant]
     Active Substance: GLIMEPIRIDE
     Indication: DIABETES MELLITUS
     Dosage: 1 MG, QD, FORMULATION: PILL
     Route: 048
     Dates: start: 201307, end: 20140404
  3. FLOMAX [Concomitant]
     Active Substance: TAMSULOSIN HYDROCHLORIDE
     Indication: BENIGN PROSTATIC HYPERPLASIA
     Dosage: 0.4 MG, QD, FORMULATION PILL
     Route: 048
     Dates: start: 201311, end: 20140328
  4. METFORMIN [Concomitant]
     Active Substance: METFORMIN HYDROCHLORIDE
     Indication: DIABETES MELLITUS
     Dosage: 250 MG, BID, FORMULATION PILL
     Route: 048
     Dates: start: 201307, end: 20140404
  5. CHOLECALCIFEROL [Concomitant]
     Active Substance: CHOLECALCIFEROL
     Indication: ROUTINE HEALTH MAINTENANCE
     Dosage: 1 DF, QD
     Route: 048
     Dates: start: 201311, end: 20140404
  6. ALBUTEROL. [Concomitant]
     Active Substance: ALBUTEROL
     Indication: PROPHYLAXIS AGAINST BRONCHOSPASM
     Dosage: 0.5 PUFF, QID, FORMULATION: INHALANT
     Route: 048
     Dates: start: 20140221, end: 20140320
  7. PEMBROLIZUMAB. [Suspect]
     Active Substance: PEMBROLIZUMAB
     Dosage: 2 MG/KG, Q3W, DOSE REPORTED: 100 (UNIT NOT PROVIDED)
     Route: 042
     Dates: start: 20140320, end: 20140320
  8. COZAAR [Concomitant]
     Active Substance: LOSARTAN POTASSIUM
     Indication: HYPERTENSION
     Dosage: 50 MG, QD
     Route: 048
     Dates: start: 201307, end: 20140404
  9. CLONIDINE. [Concomitant]
     Active Substance: CLONIDINE
     Indication: HYPERTENSION
     Dosage: 0.05 MG, BID
     Route: 048
     Dates: start: 201307, end: 20140404
  10. PRINIVIL [Concomitant]
     Active Substance: LISINOPRIL
     Indication: HYPERTENSION
     Dosage: 40 MG, QD
     Route: 048
     Dates: start: 201307, end: 20140404
  11. IPRATROPIUM BROMIDE (WARRICK) [Concomitant]
     Active Substance: IPRATROPIUM BROMIDE
     Indication: COUGH
     Dosage: 0.13 MG, QID, FORMULATION: INHALANT
     Route: 048
     Dates: start: 201307, end: 20140404
  12. TYLENOL [Concomitant]
     Active Substance: ACETAMINOPHEN
     Indication: BACK PAIN
     Dosage: DAILY DOSE 2 TABLET , PRN
     Route: 048
     Dates: start: 201307, end: 20140221
  13. ZOFRAN [Concomitant]
     Active Substance: ONDANSETRON HYDROCHLORIDE
     Indication: PROPHYLAXIS OF NAUSEA AND VOMITING
     Dosage: DAILY DOSE 8 MG PRN
     Route: 048
     Dates: start: 201307, end: 20140221
  14. DIAZEPAM. [Concomitant]
     Active Substance: DIAZEPAM
     Indication: ANXIETY
     Dosage: 1 MG, BID
     Route: 048
     Dates: start: 201307, end: 20140221
  15. DEXAMETHASONE. [Concomitant]
     Active Substance: DEXAMETHASONE
     Indication: INFLAMMATION
     Dosage: 1 ML,QM
     Route: 042
     Dates: start: 201312, end: 20140404
  16. BENADRYL [Concomitant]
     Active Substance: DIPHENHYDRAMINE HYDROCHLORIDE
     Indication: FLUSHING
     Dosage: DAILY DOSE 25 ML ONE TIME A DOSE
     Route: 042
     Dates: start: 20140221, end: 20140221
  17. CARDIZEM [Concomitant]
     Active Substance: DILTIAZEM HYDROCHLORIDE
     Indication: HYPERTENSION
     Dosage: 7.5 MG, QID
     Route: 048
     Dates: start: 201307, end: 20140404
  18. PRILOSEC [Concomitant]
     Active Substance: OMEPRAZOLE MAGNESIUM
     Indication: ANTACID THERAPY
     Dosage: 40 MG, QD
     Route: 048
     Dates: start: 201307, end: 20140404
  19. FOLIC ACID. [Concomitant]
     Active Substance: FOLIC ACID
     Indication: FOLATE DEFICIENCY
     Dosage: 1 MG, QD, FORMULATION PILL
     Route: 048
     Dates: start: 201307, end: 20140404
  20. NORCO [Concomitant]
     Active Substance: ACETAMINOPHEN\HYDROCODONE BITARTRATE
     Indication: PAIN
     Dosage: DAILY DOSE 5 MG, PRN
     Route: 048
     Dates: start: 201307, end: 20140404
  21. LIPITOR [Concomitant]
     Active Substance: ATORVASTATIN CALCIUM
     Indication: BLOOD CHOLESTEROL INCREASED
     Dosage: 20 MG, QD, FORMULATION PILL
     Route: 048
     Dates: start: 201307, end: 20140404
  22. AVODART [Concomitant]
     Active Substance: DUTASTERIDE
     Indication: PROPHYLAXIS
     Dosage: 0.5 MG, QD
     Route: 048
     Dates: start: 201307, end: 20140404

REACTIONS (1)
  - Dyspnoea [Recovered/Resolved]

NARRATIVE: CASE EVENT DATE: 20140226
